FAERS Safety Report 19454279 (Version 1)
Quarter: 2021Q2

REPORT INFORMATION
  Report Type: Spontaneous
  Country: SE (occurrence: SE)
  Receive Date: 20210623
  Receipt Date: 20210623
  Transmission Date: 20210717
  Serious: Yes (Hospitalization)
  Sender: FDA-Public Use
  Company Number: ALC2021SE003832

PATIENT

DRUGS (1)
  1. OCULAC [POVIDONE] [Suspect]
     Active Substance: POVIDONE
     Indication: DRY EYE
     Dosage: 50 MG/ML
     Route: 047
     Dates: start: 2016, end: 2016

REACTIONS (1)
  - Eye pain [Recovered/Resolved]

NARRATIVE: CASE EVENT DATE: 2016
